FAERS Safety Report 8649610 (Version 6)
Quarter: 2013Q2

REPORT INFORMATION
  Report Type: Report from Study
  Country: BR (occurrence: BR)
  Receive Date: 20120705
  Receipt Date: 20130416
  Transmission Date: 20140414
  Serious: Yes (Death, Hospitalization)
  Sender: FDA-Public Use
  Company Number: BR-BRISTOL-MYERS SQUIBB COMPANY-16723058

PATIENT
  Age: 47 Year
  Sex: Female

DRUGS (4)
  1. IPILIMUMAB [Suspect]
     Indication: MALIGNANT MELANOMA
     Dosage: 216 MG ON 11-JUN-2012.
     Route: 042
     Dates: start: 20120619, end: 20120619
  2. CORTICOSTEROID [Concomitant]
     Dates: start: 20120624, end: 20120630
  3. ONDANSETRON [Concomitant]
     Dates: start: 20120624, end: 20120630
  4. PANTOPRAZOLE [Concomitant]
     Dates: start: 20120624, end: 20120630

REACTIONS (4)
  - Sepsis [Fatal]
  - Pain [Not Recovered/Not Resolved]
  - Vomiting [Not Recovered/Not Resolved]
  - Dehydration [Not Recovered/Not Resolved]
